FAERS Safety Report 9644546 (Version 1)
Quarter: 2013Q4

REPORT INFORMATION
  Report Type: Spontaneous
  Country: US (occurrence: US)
  Receive Date: 20131025
  Receipt Date: 20131025
  Transmission Date: 20140711
  Serious: Yes (Other)
  Sender: FDA-Public Use
  Company Number: US-AMGEN-USASP2013074826

PATIENT
  Age: 63 Year
  Sex: Female

DRUGS (15)
  1. ENBREL [Suspect]
     Indication: PRODUCT USED FOR UNKNOWN INDICATION
     Dosage: 50 MG, QWK
     Route: 058
  2. MELOXICAM [Concomitant]
     Dosage: 7.5 MG, UNK
  3. AZATHIOPRINE [Concomitant]
     Dosage: 50 MG, UNK
  4. METHOTREXATE [Concomitant]
     Dosage: 2.5 MG, UNK
  5. SULFASALAZIN [Concomitant]
     Dosage: 500 MG, UNK
  6. NABUMETONE [Concomitant]
     Dosage: 750 MG, UNK
  7. CARTIA XT [Concomitant]
     Dosage: 120/24 HR
  8. PAROXETINE [Concomitant]
     Dosage: 30 MG, UNK
  9. METOPROLOL [Concomitant]
     Dosage: 100 MG, UNK
  10. HYDROCHLOROTHIAZIDE W/TRIAMTERENE [Concomitant]
     Dosage: 25-50 MG, UNK
  11. DIOVAN [Concomitant]
     Dosage: 40 MG, UNK
  12. FISH OIL [Concomitant]
     Dosage: UNK
  13. CALCIUM [Concomitant]
     Dosage: UNK
  14. VITAMIN D                          /00107901/ [Concomitant]
     Dosage: 400 UNIT, UNK
  15. MULTIVITAMINS, PLAIN [Concomitant]
     Dosage: UNK

REACTIONS (1)
  - Back disorder [Unknown]
